FAERS Safety Report 5967960-9 (Version None)
Quarter: 2008Q4

REPORT INFORMATION
  Report Type: 
  Country: None (occurrence: None)
  Receive Date: 20081119
  Receipt Date: 20081119
  Transmission Date: 20090506
  Serious: Yes (Life-Threatening, Hospitalization, Disabling, Other)
  Sender: FDA-Public Use
  Company Number: None

PATIENT
  Age: 86 Year
  Sex: Female
  Weight: 54.4316 kg

DRUGS (1)
  1. WELLBUTRIN [Suspect]
     Indication: DEPRESSION
     Dates: start: 20080602, end: 20080603

REACTIONS (24)
  - ABNORMAL BEHAVIOUR [None]
  - AGITATION [None]
  - CEREBROVASCULAR ACCIDENT [None]
  - COGNITIVE DISORDER [None]
  - CONFUSIONAL STATE [None]
  - CONVULSION [None]
  - DEPERSONALISATION [None]
  - DEVICE RELATED INFECTION [None]
  - DYSARTHRIA [None]
  - ELECTROCARDIOGRAM ABNORMAL [None]
  - FAECAL INCONTINENCE [None]
  - FALL [None]
  - FEMUR FRACTURE [None]
  - GENERAL PHYSICAL HEALTH DETERIORATION [None]
  - HALLUCINATION [None]
  - HOSTILITY [None]
  - INJURY [None]
  - JOINT DISLOCATION [None]
  - MENTAL IMPAIRMENT [None]
  - MENTAL STATUS CHANGES [None]
  - MOVEMENT DISORDER [None]
  - PERSONALITY CHANGE [None]
  - TIC [None]
  - URINARY INCONTINENCE [None]
